FAERS Safety Report 15003732 (Version 1)
Quarter: 2018Q2

REPORT INFORMATION
  Report Type: Spontaneous
  Country: US (occurrence: US)
  Receive Date: 20180613
  Receipt Date: 20180613
  Transmission Date: 20180711
  Serious: No
  Sender: FDA-Public Use
  Company Number: US-UNITED THERAPEUTICS-UNT-2018-008218

PATIENT
  Sex: Female

DRUGS (2)
  1. REMODULIN [Suspect]
     Active Substance: TREPROSTINIL
     Indication: PULMONARY ARTERIAL HYPERTENSION
     Dosage: 0.058 ?G/KG, CONTINUING
     Route: 058
     Dates: start: 201803
  2. REMODULIN [Suspect]
     Active Substance: TREPROSTINIL
     Dosage: UNK
     Route: 058
     Dates: start: 20180529

REACTIONS (8)
  - Pyrexia [Unknown]
  - Wheezing [Unknown]
  - Infusion site scab [Unknown]
  - Diarrhoea [Unknown]
  - Fatigue [Unknown]
  - Nasal congestion [Unknown]
  - Infusion site pruritus [Recovering/Resolving]
  - Pulse abnormal [Unknown]

NARRATIVE: CASE EVENT DATE: 20180604
